FAERS Safety Report 7898597-2 (Version None)
Quarter: 2011Q4

REPORT INFORMATION
  Report Type: 
  Country: None (occurrence: None)
  Receive Date: 20111107
  Receipt Date: 20111031
  Transmission Date: 20120403
  Serious: Yes (Hospitalization)
  Sender: FDA-Public Use
  Company Number: US-US-EMD SERONO, INC.-7093129

PATIENT
  Sex: Female

DRUGS (1)
  1. REBIF [Suspect]
     Indication: MULTIPLE SCLEROSIS
     Route: 058
     Dates: start: 20060831

REACTIONS (7)
  - OSTEOPOROSIS [None]
  - INJECTION SITE IRRITATION [None]
  - INJECTION SITE ERYTHEMA [None]
  - SPINAL COMPRESSION FRACTURE [None]
  - CONTUSION [None]
  - FALL [None]
  - BALANCE DISORDER [None]
